FAERS Safety Report 19649017 (Version 2)
Quarter: 2021Q3

REPORT INFORMATION
  Report Type: Report from Study
  Country: None (occurrence: US)
  Receive Date: 20210802
  Receipt Date: 20210817
  Transmission Date: 20211014
  Serious: Yes (Hospitalization)
  Sender: FDA-Public Use
  Company Number: US-ABBVIE-21P-163-3989711-00

PATIENT
  Age: 69 Year
  Sex: Female
  Weight: 93.7 kg

DRUGS (6)
  1. VENETOCLAX. [Suspect]
     Active Substance: VENETOCLAX
     Indication: DIFFUSE LARGE B-CELL LYMPHOMA
     Dosage: DAYS 4?8 (CYCLE 1),  DAYS 1?5 (CYCLES 2?6; MOST RECENT DOSE WAS  25 MAY 2021 + 15 JUN 2021
     Route: 048
     Dates: start: 20210226
  2. CYCLOPHOSPHAMIDE. [Concomitant]
     Active Substance: CYCLOPHOSPHAMIDE
     Indication: DIFFUSE LARGE B-CELL LYMPHOMA
     Dosage: ON DAY 1 OF EACH CYCLE; MOST RECENT DOSE WAS ON 21 MAY 2021 + 11 JUN 2021
     Route: 042
     Dates: start: 20210226
  3. DOXORUBICIN HYDROCHLORIDE. [Concomitant]
     Active Substance: DOXORUBICIN HYDROCHLORIDE
     Indication: DIFFUSE LARGE B-CELL LYMPHOMA
     Dosage: ON DAY 1 OF EACH CYCLE;MOST RECENT DOSE WAS ON 21 MAY 2021 + 11 JUN 2021
     Route: 042
     Dates: start: 20210226
  4. RITUXIMAB. [Concomitant]
     Active Substance: RITUXIMAB
     Indication: DIFFUSE LARGE B-CELL LYMPHOMA
     Dosage: DAY 1 OF EACH 21 DAY CYCLE; MOST RECENT DOSE WAS ON 21 MAY 2021 + 11 JUN 2021
     Route: 042
     Dates: start: 20210226
  5. VINCRISTINE SULFATE. [Concomitant]
     Active Substance: VINCRISTINE SULFATE
     Indication: DIFFUSE LARGE B-CELL LYMPHOMA
     Dosage: ON DAY 1: MOST RECENT DOSE WAS ON 21 MAY 2021 + 11 JUN 2021
     Route: 042
     Dates: start: 20210226
  6. PREDNISONE. [Concomitant]
     Active Substance: PREDNISONE
     Indication: DIFFUSE LARGE B-CELL LYMPHOMA
     Dosage: ON DAYS 1?5; MOST RECENT DOSE WAS ON 25 MAY 2021 + 15 JUN 2021
     Route: 048
     Dates: start: 20210226

REACTIONS (6)
  - Dehydration [Recovered/Resolved with Sequelae]
  - Fatigue [Recovered/Resolved with Sequelae]
  - Muscular weakness [Recovered/Resolved]
  - Dehydration [Recovered/Resolved]
  - Hypotension [Recovered/Resolved]
  - Fatigue [Recovered/Resolved]

NARRATIVE: CASE EVENT DATE: 20210521
